FAERS Safety Report 19749498 (Version 2)
Quarter: 2021Q3

REPORT INFORMATION
  Report Type: Spontaneous
  Country: US (occurrence: US)
  Receive Date: 20210826
  Receipt Date: 20210922
  Transmission Date: 20211014
  Serious: No
  Sender: FDA-Public Use
  Company Number: US-ALKERMES INC.-ALK-2021-004322

PATIENT
  Age: 17 Year
  Sex: Male
  Weight: 104.31 kg

DRUGS (2)
  1. ABILIFY [Concomitant]
     Active Substance: ARIPIPRAZOLE
     Indication: BIPOLAR DISORDER
     Dosage: UNK
     Route: 065
  2. ARISTADA [Suspect]
     Active Substance: ARIPIPRAZOLE LAUROXIL
     Indication: BIPOLAR DISORDER
     Dosage: 441 MILLIGRAM
     Route: 030
     Dates: start: 20210817, end: 20210817

REACTIONS (5)
  - Accidental underdose [Recovered/Resolved]
  - Needle issue [Recovered/Resolved]
  - Product use issue [Not Recovered/Not Resolved]
  - Liquid product physical issue [Recovered/Resolved]
  - Off label use [Not Recovered/Not Resolved]

NARRATIVE: CASE EVENT DATE: 20210817
